FAERS Safety Report 7194868-6 (Version None)
Quarter: 2010Q4

REPORT INFORMATION
  Report Type: 
  Country: None (occurrence: None)
  Receive Date: 20101223
  Receipt Date: 20100920
  Transmission Date: 20110411
  Serious: No
  Sender: FDA-Public Use
  Company Number: US-AMGEN-KDL439696

PATIENT

DRUGS (11)
  1. ENBREL [Suspect]
     Indication: PRODUCT USED FOR UNKNOWN INDICATION
     Dosage: 50 MG, QWK
     Route: 058
  2. METHOTREXATE [Concomitant]
     Dosage: 2.5 MG, UNK
  3. INSULIN GLARGINE [Concomitant]
     Dosage: 100 ML, UNK
  4. LISINOPRIL [Concomitant]
     Dosage: 2.5 MG, UNK
  5. SIMVASTATIN [Concomitant]
     Dosage: 5 MG, UNK
  6. FOLIC ACID [Concomitant]
     Dosage: 1 MG, UNK
  7. INSULIN ASPART [Concomitant]
     Dosage: 100 ML, UNK
  8. METOPROLOL TARTRATE [Concomitant]
     Dosage: 25 MG, UNK
  9. ERGOCALCIFEROL [Concomitant]
     Dosage: 400 IU, UNK
  10. COLECALCIFEROL [Concomitant]
     Dosage: UNK UNK, UNK
  11. ASPIRIN [Concomitant]
     Dosage: 81 MG, UNK

REACTIONS (2)
  - INJECTION SITE ERYTHEMA [None]
  - INJECTION SITE PRURITUS [None]
